FAERS Safety Report 23324221 (Version 4)
Quarter: 2024Q1

REPORT INFORMATION
  Report Type: Spontaneous
  Country: EG (occurrence: EG)
  Receive Date: 20231221
  Receipt Date: 20240111
  Transmission Date: 20240410
  Serious: Yes (Other)
  Sender: FDA-Public Use
  Company Number: EG-NOVOPROD-1151975

PATIENT
  Age: 46 Year
  Sex: Female
  Weight: 105 kg

DRUGS (1)
  1. INSULIN HUMAN [Suspect]
     Active Substance: INSULIN HUMAN
     Indication: Product used for unknown indication
     Dosage: UNK

REACTIONS (2)
  - Hemiplegia [Not Recovered/Not Resolved]
  - Cerebral thrombosis [Not Recovered/Not Resolved]

NARRATIVE: CASE EVENT DATE: 20210707
